FAERS Safety Report 26104867 (Version 1)
Quarter: 2025Q4

REPORT INFORMATION
  Report Type: Spontaneous
  Country: EU (occurrence: EU)
  Receive Date: 20251130
  Receipt Date: 20251130
  Transmission Date: 20260118
  Serious: Yes (Other)
  Sender: ALKEM
  Company Number: EU-ALKEM LABORATORIES LIMITED-SI-ALKEM-2024-26832

PATIENT
  Age: 46 Year
  Sex: Male

DRUGS (6)
  1. MYCOPHENOLATE MOFETIL [Suspect]
     Active Substance: MYCOPHENOLATE MOFETIL
     Indication: Scleritis
     Dosage: 1 GRAM, BID
     Route: 065
  2. TACROLIMUS [Suspect]
     Active Substance: TACROLIMUS
     Indication: Scleritis
     Dosage: 5 MILLIGRAM, QD
     Route: 065
  3. METHYLPREDNISOLONE [Suspect]
     Active Substance: METHYLPREDNISOLONE
     Indication: Scleritis
     Dosage: 64 MILLIGRAM
     Route: 048
  4. METHYLPREDNISOLONE [Suspect]
     Active Substance: METHYLPREDNISOLONE
     Dosage: 12 MILLIGRAM
     Route: 048
  5. METHOTREXATE [Suspect]
     Active Substance: METHOTREXATE
     Indication: Scleritis
     Dosage: 20 MILLIGRAM, ONCE WEEKLY
     Route: 065
  6. RITUXIMAB [Suspect]
     Active Substance: RITUXIMAB
     Indication: Scleritis
     Dosage: 500 MILLIGRAM (TWO INTRAVENOUS INFUSIONS SEPARATED BY TWO WEEKS)
     Route: 042

REACTIONS (3)
  - Scleritis [Unknown]
  - Disease recurrence [Unknown]
  - Drug ineffective [Unknown]
